FAERS Safety Report 15966622 (Version 1)
Quarter: 2019Q1

REPORT INFORMATION
  Report Type: Spontaneous
  Country: FR (occurrence: FR)
  Receive Date: 20190215
  Receipt Date: 20190215
  Transmission Date: 20190418
  Serious: Yes (Hospitalization, Other)
  Sender: FDA-Public Use
  Company Number: FR-009507513-1902FRA004306

PATIENT
  Age: 87 Year
  Sex: Female

DRUGS (1)
  1. PEMBROLIZUMAB. [Suspect]
     Active Substance: PEMBROLIZUMAB
     Indication: ACRAL LENTIGINOUS MELANOMA
     Dosage: 2 MILLIGRAM/KILOGRAM, EVERY 3 WEEKS, 2 INFUSIONS
     Route: 042

REACTIONS (2)
  - Immune-mediated adverse reaction [Unknown]
  - Polymyositis [Unknown]
